FAERS Safety Report 25848311 (Version 1)
Quarter: 2025Q3

REPORT INFORMATION
  Report Type: Spontaneous
  Country: US (occurrence: None)
  Receive Date: 20250924
  Receipt Date: 20250924
  Transmission Date: 20251020
  Serious: No
  Sender: FDA-CTU
  Company Number: None

PATIENT
  Sex: Male

DRUGS (1)
  1. PULMOZYME [Suspect]
     Active Substance: DORNASE ALFA
     Indication: Heterotaxia
     Dosage: 1 MG DAILY RESPIRATORY (INHALATION)?
     Route: 055
     Dates: start: 20250716

REACTIONS (3)
  - Chest discomfort [None]
  - Dyspnoea [None]
  - Pain [None]
